FAERS Safety Report 9921215 (Version 1)
Quarter: 2014Q1

REPORT INFORMATION
  Report Type: Spontaneous
  Country: US (occurrence: None)
  Receive Date: 20140221
  Receipt Date: 20140221
  Transmission Date: 20141002
  Serious: Yes (Other)
  Sender: FDA-Public Use
  Company Number: None

PATIENT
  Age: 77 Year
  Sex: Female
  Weight: 84 kg

DRUGS (11)
  1. LEVOFLOXACIN 500 MG [Suspect]
     Indication: DIVERTICULITIS
     Route: 042
     Dates: start: 20130329, end: 20130402
  2. ACETAMINOPHEN/HYDROCODONE [Concomitant]
  3. ALLOPURINOL [Concomitant]
  4. BISACODYL [Concomitant]
  5. DILTIAZEM CD [Concomitant]
  6. FAMOTIDINE [Concomitant]
  7. FERROUS SULFATE [Concomitant]
  8. FUROSEMIDE [Concomitant]
  9. LEVOTHYROXINE [Concomitant]
  10. METRONIDAZOLE [Concomitant]
  11. PAROXETINE [Concomitant]

REACTIONS (9)
  - International normalised ratio increased [None]
  - Renal impairment [None]
  - Confusional state [None]
  - Disorientation [None]
  - Muscle twitching [None]
  - Muscle spasms [None]
  - Grimacing [None]
  - Muscle contracture [None]
  - Dyskinesia [None]
